FAERS Safety Report 12355182 (Version 1)
Quarter: 2016Q2

REPORT INFORMATION
  Report Type: Spontaneous
  Country: US (occurrence: None)
  Receive Date: 20160510
  Receipt Date: 20160510
  Transmission Date: 20160815
  Serious: No
  Sender: FDA-Public Use
  Company Number: None

PATIENT
  Age: 69 Year
  Sex: Male
  Weight: 124.7 kg

DRUGS (2)
  1. LEUPROLIDE ACETATE. [Suspect]
     Active Substance: LEUPROLIDE ACETATE
     Dates: end: 20160401
  2. CASODEX [Suspect]
     Active Substance: BICALUTAMIDE
     Dates: end: 20160506

REACTIONS (3)
  - Depression [None]
  - Depressed mood [None]
  - Mood altered [None]

NARRATIVE: CASE EVENT DATE: 20160502
